FAERS Safety Report 10312379 (Version 1)
Quarter: 2014Q3

REPORT INFORMATION
  Report Type: Spontaneous
  Country: JP (occurrence: JP)
  Receive Date: 20140718
  Receipt Date: 20140718
  Transmission Date: 20150326
  Serious: Yes (Death)
  Sender: FDA-Public Use
  Company Number: JP-ROCHE-1434470

PATIENT
  Age: 58 Year
  Sex: Male

DRUGS (8)
  1. XELODA [Suspect]
     Active Substance: CAPECITABINE
     Indication: RECTAL CANCER RECURRENT
     Dosage: DOSAGE IS UNCERTAIN, STRENGTH : 300
     Route: 048
  2. 5-FU [Concomitant]
     Active Substance: FLUOROURACIL
     Indication: RECTAL CANCER RECURRENT
     Dosage: DOSAGE IS UNCERTAIN.
     Route: 040
  3. IRINOTECAN HYDROCHLORIDE. [Concomitant]
     Active Substance: IRINOTECAN HYDROCHLORIDE
     Indication: RECTAL CANCER RECURRENT
     Dosage: DRUG REPORTED AS : IRINOTECAN HYDROCHLORIDE HYDRATE, DOSAGE IS UNCERTAIN.
     Route: 041
  4. LEVOFOLINATE [Concomitant]
     Active Substance: LEVOLEUCOVORIN CALCIUM
     Indication: RECTAL CANCER RECURRENT
     Dosage: DOSAGE IS UNCERTAIN.
     Route: 041
  5. LEVOFOLINATE [Concomitant]
     Active Substance: LEVOLEUCOVORIN CALCIUM
     Indication: NEOADJUVANT THERAPY
     Route: 065
  6. 5-FU [Concomitant]
     Active Substance: FLUOROURACIL
     Indication: RECTAL CANCER RECURRENT
     Dosage: DOSAGE IS UNCERTAIN.
     Route: 041
  7. 5-FU [Concomitant]
     Active Substance: FLUOROURACIL
     Indication: NEOADJUVANT THERAPY
     Route: 065
  8. AVASTIN [Suspect]
     Active Substance: BEVACIZUMAB
     Indication: RECTAL CANCER RECURRENT
     Dosage: DOSAGE IS UNCERTAIN.
     Route: 041

REACTIONS (2)
  - Renal failure [Fatal]
  - Pyelonephritis [Fatal]
